FAERS Safety Report 15010277 (Version 1)
Quarter: 2018Q2

REPORT INFORMATION
  Report Type: Spontaneous
  Country: US (occurrence: US)
  Receive Date: 20180614
  Receipt Date: 20180614
  Transmission Date: 20180711
  Serious: No
  Sender: FDA-Public Use
  Company Number: US-ASTRAZENECA-2018SE66517

PATIENT
  Sex: Female

DRUGS (1)
  1. BRILINTA [Suspect]
     Active Substance: TICAGRELOR
     Indication: STENT PLACEMENT
     Route: 048
     Dates: start: 20180418

REACTIONS (9)
  - Dizziness [Unknown]
  - Visual impairment [Unknown]
  - Fatigue [Unknown]
  - Nausea [Unknown]
  - Contusion [Unknown]
  - Chest discomfort [Unknown]
  - Pain [Unknown]
  - Back pain [Not Recovered/Not Resolved]
  - Dyspnoea [Unknown]

NARRATIVE: CASE EVENT DATE: 20180516
